FAERS Safety Report 5248211-X (Version None)
Quarter: 2007Q1

REPORT INFORMATION
  Report Type: 
  Country: None (occurrence: None)
  Receive Date: 20070227
  Receipt Date: 20060724
  Transmission Date: 20070707
  Serious: No
  Sender: FDA-Public Use
  Company Number: US-BRISTOL-MYERS SQUIBB COMPANY-13453303

PATIENT
  Sex: Female

DRUGS (3)
  1. GLUCOPHAGE [Suspect]
  2. PRANDIN [Suspect]
  3. AVANDIA [Suspect]

REACTIONS (2)
  - OEDEMA PERIPHERAL [None]
  - WEIGHT INCREASED [None]
